FAERS Safety Report 24840533 (Version 2)
Quarter: 2025Q1

REPORT INFORMATION
  Report Type: Spontaneous
  Country: JP (occurrence: JP)
  Receive Date: 20250114
  Receipt Date: 20250117
  Transmission Date: 20250409
  Serious: Yes (Death, Other)
  Sender: OTSUKA
  Company Number: JP-OTSUKA-2025_000713

PATIENT
  Age: 89 Year
  Sex: Male
  Weight: 53.7 kg

DRUGS (16)
  1. SAMSCA [Suspect]
     Active Substance: TOLVAPTAN
     Indication: Cardiac failure
     Dosage: 1T (7.5 MG), QD, AFTER BREAKFAST
     Route: 065
     Dates: start: 20240514
  2. DAPAGLIFLOZIN PROPANEDIOL [Concomitant]
     Active Substance: DAPAGLIFLOZIN PROPANEDIOL
     Indication: Product used for unknown indication
     Dosage: 1T (10 MG), QD, AFTER BREAKFAST
     Route: 065
  3. CANDESARTAN CILEXETIL [Concomitant]
     Active Substance: CANDESARTAN CILEXETIL
     Indication: Product used for unknown indication
     Dosage: 1T (4 MG), QD, AFTER BREAKFAST
     Route: 065
  4. DAPRODUSTAT [Concomitant]
     Active Substance: DAPRODUSTAT
     Indication: Product used for unknown indication
     Dosage: 2T (4 MG), QD, AFTER BREAKFAST
     Route: 065
     Dates: end: 20230323
  5. DAPRODUSTAT [Concomitant]
     Active Substance: DAPRODUSTAT
     Route: 065
     Dates: start: 20230324, end: 20231106
  6. DAPRODUSTAT [Concomitant]
     Active Substance: DAPRODUSTAT
     Route: 065
     Dates: start: 20231107, end: 20240115
  7. DAPRODUSTAT [Concomitant]
     Active Substance: DAPRODUSTAT
     Route: 065
     Dates: start: 20240116, end: 20240415
  8. DAPRODUSTAT [Concomitant]
     Active Substance: DAPRODUSTAT
     Route: 065
     Dates: start: 20240416, end: 20240527
  9. AMLODIPINE BESYLATE [Concomitant]
     Active Substance: AMLODIPINE BESYLATE
     Indication: Product used for unknown indication
     Dosage: 1T (5 MG), QD, AFTER BREAKFAST
     Route: 065
  10. FEBUXOSTAT [Concomitant]
     Active Substance: FEBUXOSTAT
     Indication: Product used for unknown indication
     Dosage: 1T (10 MG), QD, AFTER BREAKFAST
     Route: 065
     Dates: end: 20240805
  11. FEBUXOSTAT [Concomitant]
     Active Substance: FEBUXOSTAT
     Dosage: 1.5T (15 MG), QD, AFTER BREAKFAST
     Route: 065
     Dates: start: 20240806
  12. AZOSEMIDE [Concomitant]
     Active Substance: AZOSEMIDE
     Indication: Product used for unknown indication
     Dosage: 0.5T (30 MG), QD, AFTER BREAKFAST
     Route: 065
     Dates: end: 20240115
  13. AZOSEMIDE [Concomitant]
     Active Substance: AZOSEMIDE
     Route: 065
     Dates: start: 20240116, end: 20240129
  14. AZOSEMIDE [Concomitant]
     Active Substance: AZOSEMIDE
     Dosage: 30 MG, QD
     Route: 065
     Dates: start: 20240130
  15. SENNOSIDES A AND B [Concomitant]
     Active Substance: SENNOSIDES A AND B
     Indication: Product used for unknown indication
     Dosage: 1T (12 MG), QD, BEFORE SLEEP
     Route: 065
  16. DAPRODUSTAT [Concomitant]
     Active Substance: DAPRODUSTAT
     Indication: Product used for unknown indication
     Dosage: 4T (16 MG), QD, AFTER BREAKFAST
     Route: 065
     Dates: start: 20240528

REACTIONS (2)
  - Death [Fatal]
  - Drug monitoring procedure not performed [Unknown]

NARRATIVE: CASE EVENT DATE: 20240101
